FAERS Safety Report 14729435 (Version 2)
Quarter: 2018Q2

REPORT INFORMATION
  Report Type: Spontaneous
  Country: US (occurrence: US)
  Receive Date: 20180406
  Receipt Date: 20180605
  Transmission Date: 20180711
  Serious: Yes (Hospitalization)
  Sender: FDA-Public Use
  Company Number: US-ACTELION-A-NJ2018-170402

PATIENT
  Age: 59 Year
  Sex: Female

DRUGS (1)
  1. OPSUMIT [Suspect]
     Active Substance: MACITENTAN
     Indication: PULMONARY ARTERIAL HYPERTENSION
     Dosage: 10 MG, QD
     Route: 048
     Dates: start: 20180206

REACTIONS (5)
  - Intra-abdominal haematoma [Unknown]
  - Blood pressure decreased [Not Recovered/Not Resolved]
  - Headache [Not Recovered/Not Resolved]
  - Pneumonia [Unknown]
  - Influenza [Unknown]

NARRATIVE: CASE EVENT DATE: 20180302
